FAERS Safety Report 5258561-9 (Version None)
Quarter: 2007Q1

REPORT INFORMATION
  Report Type: 
  Country: None (occurrence: None)
  Receive Date: 20070305
  Receipt Date: 20070216
  Transmission Date: 20070707
  Serious: Yes (Other)
  Sender: FDA-Public Use
  Company Number: 2007RR-05862

PATIENT
  Age: 2 Month
  Sex: Male

DRUGS (2)
  1. IBUPROFEN [Suspect]
     Indication: EXOSTOSIS
     Dosage: 10 MG/KG
  2. PREDNISOLONE [Concomitant]

REACTIONS (6)
  - BONE METABOLISM DISORDER [None]
  - C-REACTIVE PROTEIN INCREASED [None]
  - DRUG INEFFECTIVE FOR UNAPPROVED INDICATION [None]
  - IRRITABILITY [None]
  - LABORATORY TEST ABNORMAL [None]
  - MUSCULOSKELETAL CHEST PAIN [None]
